FAERS Safety Report 18293092 (Version 2)
Quarter: 2022Q3

REPORT INFORMATION
  Report Type: Spontaneous
  Country: CA (occurrence: None)
  Receive Date: 20200922
  Receipt Date: 20220729
  Transmission Date: 20221027
  Serious: Yes (Life-Threatening, Hospitalization, Other)
  Sender: FDA-Public Use
  Company Number: 2020SF19903

PATIENT
  Age: 76 Year
  Sex: Female
  Weight: 52 kg

DRUGS (18)
  1. CALQUENCE [Suspect]
     Active Substance: ACALABRUTINIB
     Indication: Mantle cell lymphoma recurrent
     Route: 048
     Dates: start: 2020, end: 2020
  2. XARELTO [Suspect]
     Active Substance: RIVAROXABAN
     Indication: Peripheral vein occlusion
     Route: 065
  3. XARELTO [Suspect]
     Active Substance: RIVAROXABAN
     Indication: Deep vein thrombosis
     Route: 065
  4. CENTRUM FOR WOMEN 50+ [Concomitant]
     Dosage: 1 TAB PO DAILY
  5. DILAUDID [Concomitant]
     Active Substance: HYDROMORPHONE HYDROCHLORIDE
     Dosage: 0.5-1 MG PO EVERY 1-2 HOURS PM
  6. GLICLAZIDE [Concomitant]
     Active Substance: GLICLAZIDE
     Dosage: 30 MG PO DAILY
  7. HUMALOG [Concomitant]
     Active Substance: INSULIN LISPRO
     Dosage: 100 UNIT/ML INSULIN TAKES AS NEEDED
  8. HYDROMORPHONE [Concomitant]
     Active Substance: HYDROMORPHONE
     Dosage: 4.5 MG PO BID
  9. LORAZEPAM [Concomitant]
     Active Substance: LORAZEPAM
     Dosage: 1 MG PO BID PM
  10. MELATONIN [Concomitant]
     Active Substance: MELATONIN
     Dosage: 6 MG SL AT BEDTIME
  11. METFORMIN [Concomitant]
     Active Substance: METFORMIN HYDROCHLORIDE
     Dosage: 500 MG PO BID
  12. METOCLOPRAMIDE [Concomitant]
     Active Substance: METOCLOPRAMIDE
     Dosage: 10 MG TID PM
  13. PERINDOPRIL [Concomitant]
     Active Substance: PERINDOPRIL
     Dosage: 2 MG PO DAILY
  14. PROBIOTICS NOS [Concomitant]
     Active Substance: PROBIOTICS NOS
     Dosage: 1 CAP PO DAILY
  15. SENOKOT [Concomitant]
     Active Substance: SENNOSIDES
     Dosage: 17.2 MG PO BID
  16. VALACYCLOVIR [Concomitant]
     Active Substance: VALACYCLOVIR HYDROCHLORIDE
     Dosage: 500 MG PO BID
  17. VITAMIN D [Concomitant]
     Active Substance: VITAMIN D NOS
     Dosage: 2000 UNITS PO DAILY
  18. XARELTO [Concomitant]
     Active Substance: RIVAROXABAN

REACTIONS (3)
  - Anaemia [Unknown]
  - Febrile neutropenia [Unknown]
  - Occult blood positive [Unknown]
